FAERS Safety Report 7309595-1 (Version None)
Quarter: 2011Q1

REPORT INFORMATION
  Report Type: 
  Country: None (occurrence: None)
  Receive Date: 20110223
  Receipt Date: 20110211
  Transmission Date: 20110831
  Serious: Yes (Other)
  Sender: FDA-Public Use
  Company Number: US-BAYER-2011-014030

PATIENT
  Sex: Male

DRUGS (1)
  1. CIPRO [Suspect]
     Dosage: 500 MG, UNK

REACTIONS (6)
  - DIZZINESS [None]
  - GAIT DISTURBANCE [None]
  - HALLUCINATION, VISUAL [None]
  - BALANCE DISORDER [None]
  - ASTHENIA [None]
  - INSOMNIA [None]
